FAERS Safety Report 6750806-9 (Version None)
Quarter: 2010Q2

REPORT INFORMATION
  Report Type: 
  Country: None (occurrence: None)
  Receive Date: 20100602
  Receipt Date: 20100525
  Transmission Date: 20101027
  Serious: Yes (Other)
  Sender: FDA-Public Use
  Company Number: DE-WYE-G05894410

PATIENT
  Sex: Female

DRUGS (2)
  1. VENLAFAXINE HCL [Suspect]
     Dosage: 150 MG PER DAY FROM UNKN DATE, REDUCED TO 75 MG PER DAY AND FINALLY DISCONTINUED ON UNKN DATE
     Route: 048
  2. SEROQUEL [Concomitant]

REACTIONS (4)
  - DRUG WITHDRAWAL SYNDROME [None]
  - MUSCLE SPASMS [None]
  - SUICIDAL IDEATION [None]
  - TREMOR [None]
